FAERS Safety Report 16651784 (Version 1)
Quarter: 2019Q3

REPORT INFORMATION
  Report Type: Spontaneous
  Country: US (occurrence: US)
  Receive Date: 20190730
  Receipt Date: 20190730
  Transmission Date: 20191004
  Serious: Yes (Other)
  Sender: FDA-Public Use
  Company Number: None

PATIENT
  Age: 69 Year
  Sex: Female
  Weight: 75.75 kg

DRUGS (10)
  1. EXEMESTANE. [Suspect]
     Active Substance: EXEMESTANE
     Indication: BREAST CANCER FEMALE
     Route: 048
     Dates: start: 20190531, end: 20190730
  2. MORPHINE [Concomitant]
     Active Substance: MORPHINE
  3. PROTONIX [Concomitant]
     Active Substance: PANTOPRAZOLE SODIUM
  4. AFINITOR [Suspect]
     Active Substance: EVEROLIMUS
     Route: 048
     Dates: start: 20190531, end: 20190730
  5. FASLODEX [Concomitant]
     Active Substance: FULVESTRANT
  6. XGEVA [Concomitant]
     Active Substance: DENOSUMAB
  7. DRONABINOL. [Concomitant]
     Active Substance: DRONABINOL
  8. COZAAR [Concomitant]
     Active Substance: LOSARTAN POTASSIUM
  9. SINGULAIR [Concomitant]
     Active Substance: MONTELUKAST SODIUM
  10. PLAVIX [Concomitant]
     Active Substance: CLOPIDOGREL BISULFATE

REACTIONS (1)
  - Disease progression [None]

NARRATIVE: CASE EVENT DATE: 20190730
